FAERS Safety Report 10952823 (Version 1)
Quarter: 2015Q1

REPORT INFORMATION
  Report Type: Spontaneous
  Country: US (occurrence: None)
  Receive Date: 20150323
  Receipt Date: 20150323
  Transmission Date: 20150721
  Serious: No
  Sender: FDA-Public Use
  Company Number: VIT-2014-02616

PATIENT
  Age: 60 Year
  Sex: Female

DRUGS (6)
  1. CYANOCOBALAMIN. [Concomitant]
     Active Substance: CYANOCOBALAMIN
  2. ERGOCALCIFEROL. [Concomitant]
     Active Substance: ERGOCALCIFEROL
  3. CITRACEL (CALCIUM CITRATE) [Concomitant]
  4. VELPHORO [Suspect]
     Active Substance: FERRIC OXYHYDROXIDE
     Indication: HYPERPHOSPHATAEMIA
     Route: 048
     Dates: start: 20141110
  5. RENAVITE (ASCORBIC ACID) [Concomitant]
  6. ACETYLSALICYLIC ACID [Concomitant]
     Active Substance: ASPIRIN

REACTIONS (3)
  - Rectal tenesmus [None]
  - Product taste abnormal [None]
  - Diarrhoea [None]

NARRATIVE: CASE EVENT DATE: 2014
